FAERS Safety Report 5914739-X (Version None)
Quarter: 2008Q4

REPORT INFORMATION
  Report Type: 
  Country: None (occurrence: None)
  Receive Date: 20081010
  Receipt Date: 20081003
  Transmission Date: 20090506
  Serious: Yes (Hospitalization)
  Sender: FDA-Public Use
  Company Number: ES-NOVOPROD-279639

PATIENT
  Age: 74 Year
  Sex: Female

DRUGS (6)
  1. NOVOLOG MIX 70/30 [Suspect]
     Indication: TYPE 1 DIABETES MELLITUS
     Dosage: UNKNOWN
     Route: 058
  2. NOVOLOG MIX 70/30 [Suspect]
     Dosage: 44 IU, TID 16/8/20 OR 20/8/16
     Route: 058
     Dates: start: 20080516, end: 20080915
  3. NOVOLOG MIX 70/30 [Suspect]
     Dosage: 82 IU, TID 36U/ML - 16U/ML - 30U/ML
     Route: 058
     Dates: start: 20080915
  4. DIGOXIN [Concomitant]
     Indication: CARDIAC FAILURE
     Dates: start: 20080506
  5. CLORAMFENICOL                      /00011701/ [Concomitant]
     Indication: BACTERIAL INFECTION
     Dates: start: 20080506
  6. ATORVASTATIN CALCIUM [Concomitant]
     Indication: BLOOD CHOLESTEROL INCREASED
     Dates: start: 20080506

REACTIONS (2)
  - BLOOD GLUCOSE INCREASED [None]
  - CEREBRAL INFARCTION [None]
